FAERS Safety Report 8488475-2 (Version None)
Quarter: 2012Q3

REPORT INFORMATION
  Report Type: 
  Country: None (occurrence: None)
  Receive Date: 20120705
  Receipt Date: 20120622
  Transmission Date: 20120928
  Serious: Yes (Hospitalization)
  Sender: FDA-Public Use
  Company Number: IT-JNJFOC-20120519520

PATIENT
  Sex: Female

DRUGS (16)
  1. AMLODIPINE [Concomitant]
     Indication: HYPERTENSION
     Route: 048
  2. EPOETIN BETA [Concomitant]
     Indication: PRODUCT USED FOR UNKNOWN INDICATION
     Route: 065
  3. ENALAPRIL MALEATE [Concomitant]
     Indication: HYPERTENSION
     Route: 048
  4. MAGALDRATE [Concomitant]
     Indication: PRODUCT USED FOR UNKNOWN INDICATION
     Route: 048
  5. BROMAZEPAM [Concomitant]
     Indication: PRODUCT USED FOR UNKNOWN INDICATION
     Route: 048
  6. CIPROFLOXACIN HYDROCHLORIDE [Concomitant]
     Indication: PRODUCT USED FOR UNKNOWN INDICATION
     Route: 065
  7. TRAMADOL HCL [Suspect]
     Indication: MUSCULOSKELETAL CHEST PAIN
     Route: 048
     Dates: start: 20120503, end: 20120505
  8. OLMESARTAN MEDOXOMIL [Concomitant]
     Indication: HYPERTENSION
     Route: 048
  9. INSULIN LISPRO [Concomitant]
     Indication: TYPE 2 DIABETES MELLITUS
     Route: 065
  10. CLONIDINE [Concomitant]
     Indication: HYPERTENSION
     Route: 048
  11. OMEPRAZOLE [Concomitant]
     Indication: GASTRITIS
     Route: 048
  12. INSULIN GLARGINE [Concomitant]
     Indication: TYPE 2 DIABETES MELLITUS
     Route: 065
  13. CEFTRIAXONE [Concomitant]
     Indication: PRODUCT USED FOR UNKNOWN INDICATION
     Route: 065
  14. DOXAZOSIN MESYLATE [Concomitant]
     Indication: HYPERTENSION
     Route: 048
  15. LEVOFLOXACIN [Concomitant]
     Indication: PRODUCT USED FOR UNKNOWN INDICATION
     Route: 048
  16. FUROSEMIDE [Concomitant]
     Indication: NEPHRITIC SYNDROME
     Route: 048

REACTIONS (4)
  - ERYTHEMA [None]
  - RASH MORBILLIFORM [None]
  - VASCULITIC RASH [None]
  - PRURITUS [None]
